FAERS Safety Report 5792738-9 (Version None)
Quarter: 2008Q2

REPORT INFORMATION
  Report Type: 
  Country: None (occurrence: None)
  Receive Date: 20080624
  Receipt Date: 20080610
  Transmission Date: 20081010
  Serious: Yes (Death)
  Sender: FDA-Public Use
  Company Number: 2008AL005262

PATIENT
  Age: 81 Year
  Sex: Male

DRUGS (4)
  1. DIGOXIN [Suspect]
     Indication: ARRHYTHMIA
     Dosage: 0.125MG DAILY PO
     Route: 048
     Dates: start: 20071101
  2. TOPROL-XL [Concomitant]
  3. LASIX [Concomitant]
  4. NITROGLYCERIN [Concomitant]

REACTIONS (4)
  - ARTHRALGIA [None]
  - CARDIAC FAILURE [None]
  - HYPOTENSION [None]
  - MOVEMENT DISORDER [None]
